FAERS Safety Report 9605746 (Version 1)
Quarter: 2013Q4

REPORT INFORMATION
  Report Type: Spontaneous
  Country: PT (occurrence: PT)
  Receive Date: 20131008
  Receipt Date: 20131008
  Transmission Date: 20140711
  Serious: Yes (Life-Threatening, Hospitalization)
  Sender: FDA-Public Use
  Company Number: PT-MYLANLABS-2013S1021900

PATIENT
  Age: 66 Year
  Sex: Male

DRUGS (4)
  1. CISPLATIN [Suspect]
     Indication: SMALL CELL LUNG CANCER
     Dosage: 80 MG/M2, DAY 1, EVERY 21 DAYS
     Route: 065
  2. ETOPOSIDE [Suspect]
     Indication: SMALL CELL LUNG CANCER
     Dosage: 120 MG/M2, DAY 1-3, EVERY 21 DAYS
     Route: 065
  3. LENOGRASTIM [Suspect]
     Dosage: 263 MICROG/DAY
     Route: 065
  4. PIPERACILLIN W/TAZOBACTAM          /01606301/ [Concomitant]
     Dosage: 4500MG EVERY 6H
     Route: 042

REACTIONS (3)
  - Neutropenia [Recovered/Resolved]
  - Pneumonia [Recovered/Resolved]
  - Splenic rupture [Recovered/Resolved]
